FAERS Safety Report 9945016 (Version 1)
Quarter: 2014Q1

REPORT INFORMATION
  Report Type: Report from Study
  Country: US (occurrence: US)
  Receive Date: 20140303
  Receipt Date: 20140303
  Transmission Date: 20141002
  Serious: No
  Sender: FDA-Public Use
  Company Number: US-ABBVIE-13P-163-1055235-00

PATIENT
  Age: 23 Year
  Sex: Female

DRUGS (10)
  1. HUMIRA [Suspect]
     Indication: BEHCET^S SYNDROME
     Dates: start: 20121231
  2. SYNTHROID [Concomitant]
     Indication: PRODUCT USED FOR UNKNOWN INDICATION
     Dosage: 125 MCG DAILY
  3. CYTOMEL [Concomitant]
     Indication: HORMONE REPLACEMENT THERAPY
     Dosage: DAILY
  4. NEXIUM [Concomitant]
     Indication: GASTROOESOPHAGEAL REFLUX DISEASE
  5. PENTASA [Concomitant]
     Indication: PRODUCT USED FOR UNKNOWN INDICATION
     Dosage: 1MG DAILY
  6. ZOFRAN [Concomitant]
     Indication: NAUSEA
  7. PREDNISONE [Concomitant]
     Indication: PRODUCT USED FOR UNKNOWN INDICATION
     Dosage: TAPERING DOSE
  8. CALTRACINE [Concomitant]
     Indication: GOUT
     Dosage: 1.2MG DAILY
  9. DOXYCYCLINE [Concomitant]
     Indication: PRODUCT USED FOR UNKNOWN INDICATION
     Dosage: 100MG DAILY
  10. HYDROXYCHLOROQUINE [Concomitant]
     Indication: PRODUCT USED FOR UNKNOWN INDICATION
     Dosage: 200MG MONDAY-FRIDAY

REACTIONS (2)
  - Device malfunction [Unknown]
  - Injection site pain [Recovered/Resolved]
